FAERS Safety Report 19503095 (Version 1)
Quarter: 2021Q3

REPORT INFORMATION
  Report Type: Report from Study
  Country: ES (occurrence: ES)
  Receive Date: 20210708
  Receipt Date: 20210708
  Transmission Date: 20211014
  Serious: Yes (Other)
  Sender: FDA-Public Use
  Company Number: ES-CELLTRION INC.-2021ES008941

PATIENT

DRUGS (5)
  1. CAPLACIZUMAB [Suspect]
     Active Substance: CAPLACIZUMAB
     Dosage: 1 DF, QD (PHARMACEUTICAL DOSE FORM: LYOPHILISATE FOR SUSPENSION FOR INJECTION)
     Route: 058
  2. CYCLOSPORINE. [Concomitant]
     Active Substance: CYCLOSPORINE
  3. BORTEZOMIB. [Suspect]
     Active Substance: BORTEZOMIB
     Indication: PRODUCT USED FOR UNKNOWN INDICATION
     Route: 065
  4. CAPLACIZUMAB [Suspect]
     Active Substance: CAPLACIZUMAB
     Indication: PRODUCT USED FOR UNKNOWN INDICATION
     Dosage: 1 DF, QD (PHARMACEUTICAL DOSE FORM: LYOPHILISATE FOR SUSPENSION FOR INJECTION)
     Route: 058
     Dates: start: 201902, end: 2019
  5. RITUXIMAB (UNKNOWN) [Suspect]
     Active Substance: RITUXIMAB
     Indication: PRODUCT USED FOR UNKNOWN INDICATION

REACTIONS (11)
  - Lymphadenopathy [Unknown]
  - Bacterial infection [Unknown]
  - ADAMTS13 activity decreased [Unknown]
  - Haemorrhage [Unknown]
  - Anaemia [Unknown]
  - Conjunctival haemorrhage [Unknown]
  - Disease recurrence [Unknown]
  - Toxicity to various agents [Unknown]
  - Unevaluable event [Unknown]
  - Intermenstrual bleeding [Unknown]
  - Off label use [Unknown]

NARRATIVE: CASE EVENT DATE: 2020
